FAERS Safety Report 6425074-8 (Version None)
Quarter: 2009Q4

REPORT INFORMATION
  Report Type: 
  Country: None (occurrence: None)
  Receive Date: 20091103
  Receipt Date: 20091022
  Transmission Date: 20100525
  Serious: Yes (Hospitalization)
  Sender: FDA-Public Use
  Company Number: DE-PFIZER INC-2009286777

PATIENT
  Age: 60 Year
  Sex: Male
  Weight: 71 kg

DRUGS (3)
  1. CLINDAMYCIN HYDROCHLORIDE [Suspect]
     Indication: ABSCESS
     Dosage: 600 MG, 3X/DAY
     Dates: start: 20090711, end: 20090719
  2. ETORICOXIB [Suspect]
     Indication: OSTEOARTHRITIS
     Dosage: UNK
     Route: 048
     Dates: start: 20090724
  3. MOXONIDINE [Suspect]
     Indication: HYPERTENSION
     Dosage: 0.2 MG, 1X/DAY
     Route: 048
     Dates: start: 20090714, end: 20090726

REACTIONS (1)
  - LEUKOCYTOCLASTIC VASCULITIS [None]
